FAERS Safety Report 14034639 (Version 1)
Quarter: 2017Q4

REPORT INFORMATION
  Report Type: Spontaneous
  Country: US (occurrence: US)
  Receive Date: 20171003
  Receipt Date: 20171003
  Transmission Date: 20180321
  Serious: No
  Sender: FDA-Public Use
  Company Number: US-JUBILANT CADISTA PHARMACEUTICALS-2016JUB00387

PATIENT
  Age: 50 Year
  Sex: Female
  Weight: 79.37 kg

DRUGS (6)
  1. UNSPECIFIED HEART MEDS [Concomitant]
  2. UNSPECIFIED MENTAL HEALTH MEDS [Concomitant]
  3. UNSPECIFIED CANCER MEDS [Concomitant]
  4. PANTOPRAZOLE SODIUM. [Suspect]
     Active Substance: PANTOPRAZOLE SODIUM
     Indication: GASTROOESOPHAGEAL REFLUX DISEASE
     Dosage: 1 TABLETS, UNK
     Route: 048
     Dates: start: 2013, end: 201611
  5. VITATMINS [Concomitant]
  6. UNSPECIFIED BLOOD PRESSURE MEDS [Concomitant]

REACTIONS (2)
  - Anxiety [Not Recovered/Not Resolved]
  - Feeling abnormal [Not Recovered/Not Resolved]

NARRATIVE: CASE EVENT DATE: 201611
